FAERS Safety Report 15157550 (Version 1)
Quarter: 2018Q3

REPORT INFORMATION
  Report Type: Spontaneous
  Country: FR (occurrence: FR)
  Receive Date: 20180718
  Receipt Date: 20180718
  Transmission Date: 20181010
  Serious: Yes (Hospitalization)
  Sender: FDA-Public Use
  Company Number: FR-TEVA-2018-FR-928024

PATIENT
  Age: 98 Year
  Sex: Male
  Weight: 55 kg

DRUGS (6)
  1. COUMADINE 2 MG, COMPRIM? S?CABLE [Concomitant]
     Active Substance: WARFARIN SODIUM
     Dosage: 2 DOSAGE FORMS DAILY;
     Route: 048
  2. XATRAL LP 10 MG, COMPRIM? ? LIB?RATION PROLONG?E [Concomitant]
     Active Substance: ALFUZOSIN
     Dosage: 1 DOSAGE FORMS DAILY;
     Route: 048
  3. PERMIXON 160 MG, G?LULE [Concomitant]
     Active Substance: HERBALS\SAW PALMETTO
     Dosage: 1 DOSAGE FORMS DAILY;
     Route: 048
  4. TRIATEC 1,25 MG, COMPRIM? [Concomitant]
     Dosage: 1 DOSAGE FORMS DAILY;
     Route: 048
  5. CIPROFLOXACINE [Suspect]
     Active Substance: CIPROFLOXACIN
     Indication: PROSTATITIS
     Dosage: 1000 MILLIGRAM DAILY;
     Route: 048
     Dates: start: 20180419, end: 20180503
  6. PRAVASTATINE SODIQUE [Concomitant]
     Active Substance: PRAVASTATIN SODIUM
     Dosage: 20 MILLIGRAM DAILY;
     Route: 048

REACTIONS (2)
  - Rash generalised [Recovered/Resolved]
  - Pruritus [Recovered/Resolved]

NARRATIVE: CASE EVENT DATE: 20180421
